FAERS Safety Report 5509345-5 (Version None)
Quarter: 2007Q4

REPORT INFORMATION
  Report Type: 
  Country: None (occurrence: None)
  Receive Date: 20071107
  Receipt Date: 20071026
  Transmission Date: 20080405
  Serious: Yes (Other)
  Sender: FDA-Public Use
  Company Number: US-PFIZER INC-2007090594

PATIENT
  Sex: Male
  Weight: 109.09 kg

DRUGS (11)
  1. NORVASC [Suspect]
     Indication: HYPERTENSION
     Dosage: DAILY DOSE:5MG-FREQ:DAILY
  2. LIPITOR [Suspect]
     Indication: BLOOD CHOLESTEROL INCREASED
     Dates: start: 20070101, end: 20071001
  3. LIPITOR [Suspect]
     Indication: BLOOD TRIGLYCERIDES
  4. AMLODIPINE [Suspect]
     Indication: HYPERTENSION
  5. LISINOPRIL [Concomitant]
  6. TOPROL-XL [Concomitant]
     Dosage: DAILY DOSE:50MG-FREQ:ONCE AT BEDTIME
  7. TRAZODONE HCL [Concomitant]
     Indication: INSOMNIA
  8. ULTRAM [Concomitant]
  9. GABAPENTIN [Concomitant]
  10. ASPIRIN [Concomitant]
  11. CENTRUM SILVER [Concomitant]
     Dosage: TEXT:1 DF-FREQ:DAILY

REACTIONS (4)
  - ASTHENIA [None]
  - COORDINATION ABNORMAL [None]
  - DIZZINESS [None]
  - VERTIGO POSITIONAL [None]
